FAERS Safety Report 8299158-6 (Version None)
Quarter: 2012Q2

REPORT INFORMATION
  Report Type: 
  Country: None (occurrence: None)
  Receive Date: 20120419
  Receipt Date: 20120405
  Transmission Date: 20120825
  Serious: Yes (Other)
  Sender: FDA-Public Use
  Company Number: PHHY2012CN031056

PATIENT
  Age: 58 Year
  Sex: Male

DRUGS (3)
  1. PIROXICAM [Suspect]
  2. CIMETIDINE [Suspect]
  3. DICLOFENAC SODIUM [Suspect]

REACTIONS (1)
  - RENAL IMPAIRMENT [None]
